FAERS Safety Report 4816727-3 (Version None)
Quarter: 2005Q4

REPORT INFORMATION
  Report Type: 
  Country: None (occurrence: None)
  Receive Date: 20051031
  Receipt Date: 20051031
  Transmission Date: 20060501
  Serious: Yes (Hospitalization)
  Sender: FDA-Public Use
  Company Number: None

PATIENT
  Age: 53 Month
  Sex: Female
  Weight: 67.586 kg

DRUGS (1)
  1. CYLERT [Suspect]
     Indication: ATTENTION DEFICIT/HYPERACTIVITY DISORDER
     Dosage: 37.5  TAKE TWICE A DAY PO
     Route: 048
     Dates: start: 20020510, end: 20051025

REACTIONS (3)
  - HEPATOMEGALY [None]
  - INFLAMMATION [None]
  - PAIN [None]
